FAERS Safety Report 14330554 (Version 1)
Quarter: 2017Q4

REPORT INFORMATION
  Report Type: Spontaneous
  Country: FR (occurrence: FR)
  Receive Date: 20171227
  Receipt Date: 20171227
  Transmission Date: 20180321
  Serious: Yes (Hospitalization)
  Sender: FDA-Public Use
  Company Number: FR-009507513-1712FRA012152

PATIENT
  Age: 17 Year
  Sex: Female

DRUGS (4)
  1. CELESTENE CHRONODOSE [Suspect]
     Active Substance: BETAMETHASONE
     Indication: INFECTION
     Dates: start: 20171104, end: 20171112
  2. FUSIDATE SODIUM [Suspect]
     Active Substance: FUSIDATE SODIUM
     Indication: INFECTION
     Dosage: 750 MG
     Route: 048
     Dates: start: 20171104, end: 20171105
  3. ESOMEPRAZOLE [Suspect]
     Active Substance: ESOMEPRAZOLE
     Indication: PROPHYLAXIS
     Dates: start: 20171104, end: 20171112
  4. ATARAX [Suspect]
     Active Substance: HYDROXYZINE HYDROCHLORIDE
     Indication: ANXIETY
     Dosage: UNK
     Dates: start: 20171104, end: 20171114

REACTIONS (1)
  - Rash maculo-papular [Recovered/Resolved]

NARRATIVE: CASE EVENT DATE: 20171112
